FAERS Safety Report 4630842-9 (Version None)
Quarter: 2005Q1

REPORT INFORMATION
  Report Type: 
  Country: None (occurrence: None)
  Receive Date: 20050331
  Receipt Date: 20050331
  Transmission Date: 20050727
  Serious: No
  Sender: FDA-Public Use
  Company Number: None

PATIENT
  Age: 64 Year
  Sex: Male

DRUGS (2)
  1. DBX PUTTY 10CC (TISSUE COMPONENT) MTF [Suspect]
     Indication: SPINAL OPERATION
     Dates: start: 20041207
  2. . [Concomitant]

REACTIONS (2)
  - DEVICE FAILURE [None]
  - MEDICATION ERROR [None]
